FAERS Safety Report 9845381 (Version 2)
Quarter: 2014Q1

REPORT INFORMATION
  Report Type: Spontaneous
  Country: US (occurrence: US)
  Receive Date: 20140127
  Receipt Date: 20140207
  Transmission Date: 20141002
  Serious: Yes (Other)
  Sender: FDA-Public Use
  Company Number: ALCN2014US000622

PATIENT
  Age: 60 Year
  Sex: Male

DRUGS (1)
  1. LATANOPROST [Suspect]
     Indication: GLAUCOMA
     Dosage: 1 GTT, ONCE/SINGLE
     Route: 047
     Dates: start: 20140113, end: 20140113

REACTIONS (4)
  - Tinnitus [Recovering/Resolving]
  - Dyspnoea [Recovering/Resolving]
  - Wheezing [Recovering/Resolving]
  - Exercise tolerance decreased [Recovering/Resolving]
